FAERS Safety Report 25128935 (Version 1)
Quarter: 2025Q1

REPORT INFORMATION
  Report Type: Spontaneous
  Country: US (occurrence: None)
  Receive Date: 20250327
  Receipt Date: 20250327
  Transmission Date: 20250409
  Serious: Yes (Hospitalization)
  Sender: FDA-CTU
  Company Number: None

PATIENT
  Age: 36 Year
  Sex: Male
  Weight: 87 kg

DRUGS (1)
  1. SPRYCEL [Suspect]
     Active Substance: DASATINIB
     Dates: end: 20250302

REACTIONS (4)
  - Pneumonia [None]
  - Rhinovirus infection [None]
  - Mucosal inflammation [None]
  - Herpes virus infection [None]

NARRATIVE: CASE EVENT DATE: 20250310
